FAERS Safety Report 12409157 (Version 2)
Quarter: 2016Q2

REPORT INFORMATION
  Report Type: Report from Study
  Country: US (occurrence: US)
  Receive Date: 20160526
  Receipt Date: 20160608
  Transmission Date: 20160815
  Serious: Yes (Hospitalization)
  Sender: FDA-Public Use
  Company Number: US-ACTELION-A-US2016-136645

PATIENT
  Age: 71 Year
  Sex: Female

DRUGS (1)
  1. MACITENTAN [Suspect]
     Active Substance: MACITENTAN
     Indication: PULMONARY ARTERIAL HYPERTENSION
     Dosage: 10 MG, QD
     Route: 048
     Dates: start: 20160329

REACTIONS (5)
  - Chest pain [Recovered/Resolved]
  - Arthralgia [Unknown]
  - Pneumonia [Unknown]
  - Oedema [Unknown]
  - Myocardial necrosis marker normal [Recovered/Resolved]

NARRATIVE: CASE EVENT DATE: 20160424
